FAERS Safety Report 7179395-4 (Version None)
Quarter: 2010Q4

REPORT INFORMATION
  Report Type: 
  Country: None (occurrence: None)
  Receive Date: 20101221
  Receipt Date: 20101202
  Transmission Date: 20110411
  Serious: No
  Sender: FDA-Public Use
  Company Number: US-B.I. PHARMACEUTICALS,INC./RIDGEFIELD-2010-BP-13727BP

PATIENT
  Sex: Female

DRUGS (8)
  1. PRADAXA [Suspect]
     Indication: ANTICOAGULANT THERAPY
     Dosage: 300 MG
     Route: 048
     Dates: start: 20101123
  2. PRADAXA [Suspect]
     Indication: TACHYCARDIA
  3. CITRACAL [Concomitant]
     Route: 048
  4. VITAMIN B-12 [Concomitant]
     Indication: ANAEMIA
     Route: 048
  5. SIMVASTATIN [Concomitant]
     Indication: BLOOD CHOLESTEROL INCREASED
     Dosage: 20 MG
     Route: 048
  6. SERTRALINE HYDROCHLORIDE [Concomitant]
     Indication: STRESS
     Dosage: 50 MG
     Route: 048
  7. GABAPENTIN [Concomitant]
     Dosage: 600 MG
     Route: 048
  8. SYNTHROID [Concomitant]
     Indication: HYPOTHYROIDISM
     Dosage: 5 MCG
     Route: 048
     Dates: start: 20090101

REACTIONS (4)
  - ABDOMINAL PAIN UPPER [None]
  - DEHYDRATION [None]
  - POLLAKIURIA [None]
  - URINARY INCONTINENCE [None]
